FAERS Safety Report 8485822-2 (Version None)
Quarter: 2012Q3

REPORT INFORMATION
  Report Type: 
  Country: None (occurrence: None)
  Receive Date: 20120703
  Receipt Date: 20120627
  Transmission Date: 20120928
  Serious: Yes (Hospitalization)
  Sender: FDA-Public Use
  Company Number: PHHO2012US009687

PATIENT
  Sex: Male
  Weight: 65.6 kg

DRUGS (24)
  1. BLINDED NO TREATMENT RECEIVED [Suspect]
     Indication: SQUAMOUS CELL CARCINOMA
     Dosage: UNK
  2. DECADRON [Suspect]
  3. PRILOSEC [Concomitant]
  4. SENNA-S (DOCUSATE SODIUM/SENNA ALEXANDRINA) [Concomitant]
  5. LORAZEPAM [Concomitant]
  6. MORPHINE [Concomitant]
  7. MUPIROCIN [Concomitant]
  8. ONDANSETRON [Concomitant]
  9. SILVADENE [Concomitant]
  10. ORAMORPH SR [Concomitant]
  11. FLUCONAZOLE [Concomitant]
  12. COMPARATOR CETUXIMAB [Suspect]
     Indication: TONGUE CANCER METASTATIC
     Dosage: 482 MG, QW
     Route: 042
     Dates: start: 20110620, end: 20110624
  13. LIDOCAINE [Concomitant]
  14. MIRALAX [Concomitant]
  15. ESOMEPRAZOLE [Concomitant]
  16. PERI-COLACE [Concomitant]
  17. GUAIFENESIN [Concomitant]
  18. FLUOROURACIL [Suspect]
     Indication: TONGUE CANCER METASTATIC
     Dosage: 950 MG, QD
     Dates: start: 20110619, end: 20110624
  19. PLACEBO [Suspect]
     Indication: SQUAMOUS CELL CARCINOMA
     Dosage: UNK
  20. FENTANYL [Concomitant]
  21. AFINITOR [Suspect]
     Indication: SQUAMOUS CELL CARCINOMA
     Dosage: UNK
  22. HYDROXYUREA [Suspect]
     Indication: TONGUE CANCER METASTATIC
     Dosage: 500 MG, BID
     Route: 048
     Dates: start: 20110619, end: 20110624
  23. IBUPROFEN [Concomitant]
  24. MYLANTA [Concomitant]

REACTIONS (2)
  - RENAL INJURY [None]
  - DEHYDRATION [None]
